FAERS Safety Report 8309369-9 (Version None)
Quarter: 2012Q2

REPORT INFORMATION
  Report Type: 
  Country: None (occurrence: None)
  Receive Date: 20120420
  Receipt Date: 20120416
  Transmission Date: 20120825
  Serious: Yes (Other)
  Sender: FDA-Public Use
  Company Number: 2012SP013859

PATIENT
  Age: 65 Year
  Sex: Female

DRUGS (5)
  1. RIBAVIRIN [Suspect]
     Indication: HEPATITIS C
     Dosage: 1200 MG;QD;UNK, 600 MG;QD;UNK
     Dates: start: 20120201
  2. RIBAVIRIN [Suspect]
     Indication: HEPATITIS C
     Dosage: 1200 MG;QD;UNK, 600 MG;QD;UNK
     Dates: start: 20120302, end: 20120307
  3. PEGASYS [Suspect]
     Indication: HEPATITIS C
     Dosage: 180 MCG;QW;UNK
     Dates: start: 20120201, end: 20120307
  4. VICTRELIS [Suspect]
     Indication: HEPATITIS C
     Dosage: 2400 MG;QD;PO
     Route: 048
     Dates: start: 20120302, end: 20120307
  5. FUROSEMIDE [Concomitant]

REACTIONS (2)
  - HYPONATRAEMIA [None]
  - ANAEMIA [None]
